FAERS Safety Report 7092024-3 (Version None)
Quarter: 2010Q4

REPORT INFORMATION
  Report Type: 
  Country: None (occurrence: None)
  Receive Date: 20101109
  Receipt Date: 20080923
  Transmission Date: 20110411
  Serious: No
  Sender: FDA-Public Use
  Company Number: US-KINGPHARMUSA00001-K200801113

PATIENT
  Sex: Female
  Weight: 70.295 kg

DRUGS (3)
  1. CORGARD [Suspect]
  2. CATAPRES                           /00171101/ [Concomitant]
  3. HYGROTON [Concomitant]
     Dosage: 50 MG, QD

REACTIONS (2)
  - HYPERSENSITIVITY [None]
  - MALAISE [None]
